FAERS Safety Report 6539641-4 (Version None)
Quarter: 2010Q1

REPORT INFORMATION
  Report Type: 
  Country: None (occurrence: None)
  Receive Date: 20100112
  Receipt Date: 20100106
  Transmission Date: 20100710
  Serious: Yes (Other)
  Sender: FDA-Public Use
  Company Number: 1000011145

PATIENT
  Sex: Female

DRUGS (5)
  1. SAVELLA [Suspect]
     Indication: FIBROMYALGIA
  2. LYRICA [Suspect]
     Indication: FIBROMYALGIA
  3. NEURONTIN [Suspect]
     Indication: FIBROMYALGIA
  4. UNSPECIFIED MEDICATION [Suspect]
     Indication: ANXIETY
  5. UNSPECIFIED MEDICATION [Suspect]
     Indication: BIPOLAR DISORDER

REACTIONS (7)
  - DRUG INTERACTION [None]
  - EYE SWELLING [None]
  - FEELING ABNORMAL [None]
  - IRRITABILITY [None]
  - LIP SWELLING [None]
  - LOCAL SWELLING [None]
  - OEDEMA PERIPHERAL [None]
